FAERS Safety Report 7067912-4 (Version None)
Quarter: 2010Q4

REPORT INFORMATION
  Report Type: 
  Country: None (occurrence: None)
  Receive Date: 20101028
  Receipt Date: 20101015
  Transmission Date: 20110411
  Serious: Yes (Hospitalization)
  Sender: FDA-Public Use
  Company Number: US-ELI_LILLY_AND_COMPANY-US201010003950

PATIENT
  Age: 41 Year
  Sex: Female

DRUGS (2)
  1. CYMBALTA [Suspect]
     Indication: DEPRESSION
     Dosage: 60 MG, UNK
     Dates: start: 20061001, end: 20100601
  2. DRUG USED IN DIABETES [Concomitant]

REACTIONS (3)
  - DYSPNOEA [None]
  - HYPERGLYCAEMIA [None]
  - THYROID DISORDER [None]
